FAERS Safety Report 5471823-5 (Version None)
Quarter: 2007Q3

REPORT INFORMATION
  Report Type: 
  Country: None (occurrence: None)
  Receive Date: 20070928
  Receipt Date: 20070613
  Transmission Date: 20080115
  Serious: No
  Sender: FDA-Public Use
  Company Number: US-BRISTOL-MYERS SQUIBB COMPANY-13813290

PATIENT
  Age: 87 Year
  Sex: Female
  Weight: 55 kg

DRUGS (10)
  1. DEFINITY [Suspect]
     Indication: CARDIAC STRESS TEST
     Dosage: 1.5 CC DILUTED IN 8.5CC NORMAL SALINE
     Route: 042
     Dates: start: 20070608, end: 20070608
  2. ASCORBIC ACID [Concomitant]
  3. VITAMIN B-12 [Concomitant]
  4. VITAMIN D [Concomitant]
  5. FISH OIL [Concomitant]
  6. DYAZIDE [Concomitant]
  7. AZOPT [Concomitant]
  8. OCUPRESS [Concomitant]
  9. MULTI-VITAMIN [Concomitant]
  10. CALCIUM [Concomitant]

REACTIONS (2)
  - BACK PAIN [None]
  - MUSCLE SPASMS [None]
